FAERS Safety Report 10461691 (Version 2)
Quarter: 2014Q4

REPORT INFORMATION
  Report Type: Spontaneous
  Country: US (occurrence: US)
  Receive Date: 20140918
  Receipt Date: 20141009
  Transmission Date: 20150528
  Serious: Yes (Death)
  Sender: FDA-Public Use
  Company Number: US-SA-2014SA124636

PATIENT
  Age: 68 Year
  Sex: Male
  Weight: 82 kg

DRUGS (19)
  1. PHOSLO [Concomitant]
     Active Substance: CALCIUM ACETATE
     Dosage: 1 TAN QAM AND LUNCH; 2 TABS WITH DINNER
     Route: 048
  2. MAGNESIUM OXIDE. [Concomitant]
     Active Substance: MAGNESIUM OXIDE
     Route: 048
  3. ASPIRIN. [Concomitant]
     Active Substance: ASPIRIN
     Route: 048
  4. LYRICA [Concomitant]
     Active Substance: PREGABALIN
     Indication: PAIN
     Route: 048
  5. TRENTAL [Concomitant]
     Active Substance: PENTOXIFYLLINE
  6. COREG [Concomitant]
     Active Substance: CARVEDILOL
     Route: 048
  7. PRAVASTATIN [Concomitant]
     Active Substance: PRAVASTATIN\PRAVASTATIN SODIUM
     Indication: HYPERLIPIDAEMIA
     Route: 048
  8. SORBITOL. [Concomitant]
     Active Substance: SORBITOL
     Dosage: 2 OZ IN 2 OZ OF WATER DOSE:2 OUNCE
  9. CALCITRIOL. [Concomitant]
     Active Substance: CALCITRIOL
     Indication: SECONDARY HYPERTHYROIDISM
     Route: 048
  10. PRILOSEC [Concomitant]
     Active Substance: OMEPRAZOLE MAGNESIUM
     Route: 048
  11. BROMPHENIRAMINE [Concomitant]
     Active Substance: BROMPHENIRAMINE
     Dosage: 2 TEASPOON
  12. LORATADINE. [Concomitant]
     Active Substance: LORATADINE
  13. NITROGLYCERINE [Concomitant]
     Active Substance: NITROGLYCERIN
     Route: 060
  14. FOLIC ACID/VITAMIN B12 NOS [Concomitant]
     Dosage: DOSE: 1000-400 MCG
     Route: 060
  15. RENVELA [Suspect]
     Active Substance: SEVELAMER CARBONATE
     Indication: HYPERPHOSPHATAEMIA
     Dosage: 2.4 PACKETS, 1 PO WITH MELAS TID
     Route: 048
     Dates: start: 20140203, end: 20140630
  16. TUMS [Concomitant]
     Active Substance: CALCIUM CARBONATE
     Route: 048
  17. ERGOCALCIFEROL. [Concomitant]
     Active Substance: ERGOCALCIFEROL
     Dosage: DOSE:50000 UNIT(S)
     Route: 048
  18. K-DUR [Concomitant]
     Active Substance: POTASSIUM CHLORIDE
     Indication: HYPOKALAEMIA
     Route: 065
  19. VITAMIN PREPARATION COMPOUND [Concomitant]
     Active Substance: VITAMINS

REACTIONS (1)
  - Cardiac arrest [Fatal]

NARRATIVE: CASE EVENT DATE: 20140630
